FAERS Safety Report 6349679-8 (Version None)
Quarter: 2009Q3

REPORT INFORMATION
  Report Type: 
  Country: None (occurrence: None)
  Receive Date: 20090911
  Receipt Date: 20090902
  Transmission Date: 20100115
  Serious: Yes (Other)
  Sender: FDA-Public Use
  Company Number: FR-AMGEN-US359415

PATIENT
  Sex: Female

DRUGS (3)
  1. ENBREL [Suspect]
     Indication: ANKYLOSING SPONDYLITIS
     Route: 058
     Dates: start: 20090702
  2. ATARAX [Suspect]
     Indication: PREMEDICATION
     Dosage: 1 DOSE ON THE PREVIOUS AND ON THE SAME DAY AS THE INJECTION OF ENBREL
     Route: 065
     Dates: start: 20090722, end: 20090723
  3. AERIUS [Concomitant]
     Indication: PREMEDICATION
     Dosage: 1 TABLET ON THE PREVIOUS AND ON THE SAME DAY AS THE INJECTION OF ENBREL
     Route: 048
     Dates: start: 20090708

REACTIONS (6)
  - BALANCE DISORDER [None]
  - FATIGUE [None]
  - HEART RATE IRREGULAR [None]
  - INFLUENZA LIKE ILLNESS [None]
  - SOMNOLENCE [None]
  - VERTIGO [None]
